FAERS Safety Report 8604514-X (Version None)
Quarter: 2012Q3

REPORT INFORMATION
  Report Type: 
  Country: None (occurrence: None)
  Receive Date: 20120820
  Receipt Date: 20120809
  Transmission Date: 20120928
  Serious: Yes (Other)
  Sender: FDA-Public Use
  Company Number: US-JNJFOC-20120805132

PATIENT

DRUGS (1)
  1. ORTHO EVRA [Suspect]
     Indication: FOETAL EXPOSURE DURING PREGNANCY
     Route: 064
     Dates: start: 20060101, end: 20080101

REACTIONS (3)
  - LOW BIRTH WEIGHT BABY [None]
  - CEREBRAL PALSY [None]
  - PREMATURE BABY [None]
